FAERS Safety Report 17210131 (Version 1)
Quarter: 2019Q4

REPORT INFORMATION
  Report Type: Spontaneous
  Country: US (occurrence: US)
  Receive Date: 20191227
  Receipt Date: 20191227
  Transmission Date: 20200122
  Serious: No
  Sender: FDA-Public Use
  Company Number: US-PERRIGO-19US002793

PATIENT
  Age: 50 Year
  Sex: Male
  Weight: 69.39 kg

DRUGS (7)
  1. MIGRAINE FORMULA [Suspect]
     Active Substance: ACETAMINOPHEN\ASPIRIN\CAFFEINE
     Indication: HEADACHE
     Dosage: 2 TO 3 TABLETS, QD, PRN
     Route: 048
     Dates: start: 2013, end: 20190210
  2. CARDIAC THERAPY [Concomitant]
     Active Substance: UNSPECIFIED INGREDIENT
     Indication: MYOCARDIAL INFARCTION
     Dosage: UNK
     Route: 065
  3. ATORVASTATIN CALCIUM. [Suspect]
     Active Substance: ATORVASTATIN CALCIUM
     Indication: EXPOSURE TO UNSPECIFIED AGENT
     Dosage: UNKNOWN, UNKNOWN
     Route: 048
     Dates: start: 20190211, end: 20190221
  4. ANTIHYPERTENSIVES [Concomitant]
     Active Substance: UNSPECIFIED INGREDIENT
     Indication: MYOCARDIAL INFARCTION
  5. BABY ASPIRIN [Concomitant]
     Active Substance: ASPIRIN
     Indication: MYOCARDIAL INFARCTION
     Dosage: 81MG
     Route: 065
  6. LIPID MODIFYING AGENTS [Concomitant]
     Active Substance: UNSPECIFIED INGREDIENT
     Indication: BLOOD CHOLESTEROL INCREASED
     Dosage: UNK
     Route: 065
     Dates: start: 2013
  7. MIGRAINE FORMULA [Suspect]
     Active Substance: ACETAMINOPHEN\ASPIRIN\CAFFEINE
     Dosage: 2 TO 3 TABLETS, QD, PRN
     Route: 048
     Dates: start: 20190211, end: 20190221

REACTIONS (3)
  - Off label use [Recovered/Resolved]
  - Accidental exposure to product [Recovered/Resolved]
  - Blood pressure increased [Recovered/Resolved]

NARRATIVE: CASE EVENT DATE: 2013
